FAERS Safety Report 9177394 (Version 3)
Quarter: 2013Q2

REPORT INFORMATION
  Report Type: Report from Study
  Country: CH (occurrence: CH)
  Receive Date: 20130321
  Receipt Date: 20130603
  Transmission Date: 20140414
  Serious: Yes (Hospitalization, Disabling)
  Sender: FDA-Public Use
  Company Number: CH-US-EMD SERONO, INC.-7199645

PATIENT
  Sex: Female
  Weight: 85 kg

DRUGS (2)
  1. REBIF [Suspect]
     Indication: MULTIPLE SCLEROSIS
     Route: 058
     Dates: start: 20100721
  2. EFEXOR                             /01233801/ [Concomitant]
     Indication: PRODUCT USED FOR UNKNOWN INDICATION

REACTIONS (1)
  - Adenocarcinoma gastric [Not Recovered/Not Resolved]
